FAERS Safety Report 12175115 (Version 2)
Quarter: 2016Q2

REPORT INFORMATION
  Report Type: Spontaneous
  Country: US (occurrence: US)
  Receive Date: 20160314
  Receipt Date: 20160610
  Transmission Date: 20160815
  Serious: Yes (Other)
  Sender: FDA-Public Use
  Company Number: US-ASTELLAS-2015US048630

PATIENT
  Sex: Male

DRUGS (1)
  1. XTANDI [Suspect]
     Active Substance: ENZALUTAMIDE
     Indication: PROSTATE CANCER
     Route: 048

REACTIONS (7)
  - Dry skin [Unknown]
  - Herpes zoster [Unknown]
  - Cardiac operation [Unknown]
  - Arthralgia [Unknown]
  - Diarrhoea [Unknown]
  - Surgery [Unknown]
  - Fatigue [Unknown]
